FAERS Safety Report 5895823-6 (Version None)
Quarter: 2008Q3

REPORT INFORMATION
  Report Type: 
  Country: None (occurrence: None)
  Receive Date: 20080822
  Receipt Date: 20070920
  Transmission Date: 20090109
  Serious: Yes (Other)
  Sender: FDA-Public Use
  Company Number: 20070287

PATIENT
  Sex: Male

DRUGS (1)
  1. ACETYLCYSTEINE [Suspect]
     Dosage: 3 ML BID NASAL
     Route: 045
     Dates: start: 20070919, end: 20070919

REACTIONS (1)
  - OVERDOSE [None]
